FAERS Safety Report 25634744 (Version 5)
Quarter: 2025Q4

REPORT INFORMATION
  Report Type: Report from Study
  Country: US (occurrence: US)
  Receive Date: 20250801
  Receipt Date: 20251022
  Transmission Date: 20260118
  Serious: Yes (Death, Hospitalization)
  Sender: PFIZER
  Company Number: US-PFIZER INC-PV202500092407

PATIENT
  Age: 75 Year
  Sex: Female

DRUGS (3)
  1. IBRANCE [Suspect]
     Active Substance: PALBOCICLIB
     Indication: Breast cancer female
     Dosage: 125 MG TABLET 1 TABLET BY MOUTH 1 TIME A DAY FOR 3 WEEKS ON 7 DAYS OFF EVERY 28 DAY CYCLE
     Route: 048
     Dates: start: 20250704, end: 20250723
  2. IBRANCE [Suspect]
     Active Substance: PALBOCICLIB
     Dosage: 75MG TABLET TAKE 1 TABLET BY MOUTH FOR 21 DAYS ON 7 DAYS OFF
     Route: 048
     Dates: start: 20250822, end: 20250905
  3. LETROZOLE [Concomitant]
     Active Substance: LETROZOLE
     Dosage: UNK

REACTIONS (5)
  - Death [Fatal]
  - Haematochezia [Recovered/Resolved]
  - Platelet count decreased [Unknown]
  - Haemoglobin decreased [Recovering/Resolving]
  - White blood cell count decreased [Recovering/Resolving]

NARRATIVE: CASE EVENT DATE: 20250101
